FAERS Safety Report 25632302 (Version 1)
Quarter: 2025Q3

REPORT INFORMATION
  Report Type: Spontaneous
  Country: US (occurrence: None)
  Receive Date: 20250731
  Receipt Date: 20250731
  Transmission Date: 20251021
  Serious: Yes (Hospitalization, Other)
  Sender: FDA-CTU
  Company Number: None

PATIENT
  Age: 39 Year
  Sex: Male
  Weight: 71.2 kg

DRUGS (3)
  1. ARIPIPRAZOLE [Suspect]
     Active Substance: ARIPIPRAZOLE
     Indication: Psychotic disorder
     Dosage: FREQUENCY : DAILY;?
     Route: 048
  2. SILDENAFIL [Suspect]
     Active Substance: SILDENAFIL
  3. HALOPERIDOL [Concomitant]
     Active Substance: HALOPERIDOL

REACTIONS (7)
  - Priapism [None]
  - Injection site discharge [None]
  - Penis disorder [None]
  - Agitation [None]
  - Aggression [None]
  - Somnolence [None]
  - Refusal of treatment by patient [None]

NARRATIVE: CASE EVENT DATE: 20250619
